FAERS Safety Report 13891304 (Version 1)
Quarter: 2017Q3

REPORT INFORMATION
  Report Type: Spontaneous
  Country: US (occurrence: US)
  Receive Date: 20170822
  Receipt Date: 20170822
  Transmission Date: 20171127
  Serious: Yes (Hospitalization)
  Sender: FDA-Public Use
  Company Number: US-BAYER-2017-156085

PATIENT
  Age: 24 Year
  Sex: Female

DRUGS (3)
  1. NORVASC [Concomitant]
     Active Substance: AMLODIPINE BESYLATE
     Indication: HYPERTENSION
     Dosage: 5 MG, QD
     Route: 048
  2. ACETYLSALICYLIC ACID({=100 MG) [Suspect]
     Active Substance: ASPIRIN
     Indication: PROTEINURIA
     Dosage: 81 MG, QD
     Route: 048
  3. ACETYLSALICYLIC ACID({=100 MG) [Suspect]
     Active Substance: ASPIRIN
     Indication: PROPHYLAXIS

REACTIONS (9)
  - Glycosylated haemoglobin increased [None]
  - Induced labour [None]
  - Exposure during pregnancy [None]
  - Off label use [None]
  - Proteinuria [None]
  - Hypertension [None]
  - Pre-eclampsia [None]
  - Premature delivery [None]
  - Liver function test increased [None]
